FAERS Safety Report 16055547 (Version 1)
Quarter: 2019Q1

REPORT INFORMATION
  Report Type: Report from Study
  Country: EG (occurrence: EG)
  Receive Date: 20190311
  Receipt Date: 20190311
  Transmission Date: 20190418
  Serious: Yes (Other)
  Sender: FDA-Public Use
  Company Number: EG-ROCHE-2274973

PATIENT

DRUGS (3)
  1. RIBAVIRIN. [Suspect]
     Active Substance: RIBAVIRIN
     Indication: HEPATITIS C
     Dosage: INITIAL DOSE WAS 200 MG/DAY WITH A WEEKLY INCREASE BY 200 MG ACCORDING TO HEMOGLOBIN (HB) LEVELS TO
     Route: 065
  2. SOFOSBUVIR [Suspect]
     Active Substance: SOFOSBUVIR
     Indication: HEPATITIS C
     Route: 065
  3. RIBAVIRIN. [Suspect]
     Active Substance: RIBAVIRIN
     Dosage: AT WEEK 4,
     Route: 065

REACTIONS (3)
  - Treatment failure [Unknown]
  - Haemolytic anaemia [Unknown]
  - Transplant rejection [Unknown]
